FAERS Safety Report 10884077 (Version 1)
Quarter: 2015Q1

REPORT INFORMATION
  Report Type: Spontaneous
  Country: US (occurrence: None)
  Receive Date: 20150226
  Receipt Date: 20150226
  Transmission Date: 20150721
  Serious: Yes (Death, Hospitalization)
  Sender: FDA-Public Use
  Company Number: UTC-046892

PATIENT
  Age: 65 Year
  Sex: Female
  Weight: 61.2 kg

DRUGS (3)
  1. REMODULIN [Suspect]
     Active Substance: TREPROSTINIL
     Indication: COR PULMONALE CHRONIC
     Route: 041
     Dates: start: 20111012
  2. REVATIO (SILDENAFIL CITRATE) UNKNOWN [Concomitant]
  3. LETAIRIS (AMBRISENTAN) UNKNOWN [Concomitant]

REACTIONS (1)
  - Pneumonia [None]

NARRATIVE: CASE EVENT DATE: 2014
